FAERS Safety Report 9154033 (Version 1)
Quarter: 2013Q1

REPORT INFORMATION
  Report Type: Spontaneous
  Country: IT (occurrence: IT)
  Receive Date: 20130311
  Receipt Date: 20130311
  Transmission Date: 20140127
  Serious: Yes (Hospitalization)
  Sender: FDA-Public Use
  Company Number: IT-PFIZER INC-2013079869

PATIENT
  Age: 38 Year
  Sex: Male

DRUGS (1)
  1. XANAX [Suspect]
     Indication: DEPRESSION
     Dosage: UNK, 1X/DAY
     Route: 048
     Dates: start: 20121201, end: 20130131

REACTIONS (1)
  - Sopor [Recovered/Resolved]
